FAERS Safety Report 5520410-9 (Version None)
Quarter: 2007Q4

REPORT INFORMATION
  Report Type: 
  Country: None (occurrence: None)
  Receive Date: 20071119
  Receipt Date: 20071113
  Transmission Date: 20080405
  Serious: Yes (Hospitalization)
  Sender: FDA-Public Use
  Company Number: US-BRISTOL-MYERS SQUIBB COMPANY-13981196

PATIENT
  Age: 72 Year
  Sex: Female
  Weight: 51 kg

DRUGS (8)
  1. CARBOPLATIN [Suspect]
     Indication: SMALL CELL LUNG CANCER EXTENSIVE STAGE
     Route: 042
     Dates: start: 20070619, end: 20070619
  2. PEMETREXED DISODIUM [Suspect]
     Indication: SMALL CELL LUNG CANCER EXTENSIVE STAGE
     Route: 042
     Dates: start: 20070619, end: 20070619
  3. FOLIC ACID [Concomitant]
     Dates: start: 20070614, end: 20070630
  4. VITAMIN B-12 [Concomitant]
     Dates: start: 20070615, end: 20070615
  5. DEXAMETHASONE [Concomitant]
     Dates: start: 20070618, end: 20070620
  6. LORTAB [Concomitant]
     Dates: start: 20060405
  7. LORTAB [Concomitant]
     Dates: start: 20060405
  8. NICOTINE [Concomitant]
     Dates: start: 20070530

REACTIONS (8)
  - COMA [None]
  - DEHYDRATION [None]
  - ENCEPHALOPATHY [None]
  - FEBRILE NEUTROPENIA [None]
  - HYPOKALAEMIA [None]
  - LEUKOPENIA [None]
  - PANCYTOPENIA [None]
  - THROMBOCYTOPENIA [None]
